FAERS Safety Report 13122493 (Version 1)
Quarter: 2017Q1

REPORT INFORMATION
  Report Type: Spontaneous
  Country: US (occurrence: US)
  Receive Date: 20170117
  Receipt Date: 20170117
  Transmission Date: 20170428
  Serious: No
  Sender: FDA-Public Use
  Company Number: US-BAYER-2017-006116

PATIENT
  Age: 89 Year
  Sex: Female
  Weight: 74 kg

DRUGS (2)
  1. ALEVE [Suspect]
     Active Substance: NAPROXEN SODIUM
     Indication: PAIN
     Dosage: 1 DF, UNK (AS NEEDED)
     Route: 048
     Dates: start: 2015
  2. BLOOD PRESSURE MEDICATION (NOS) [Concomitant]
     Active Substance: UNSPECIFIED INGREDIENT
     Dosage: UNK

REACTIONS (4)
  - Throat irritation [Recovered/Resolved]
  - Regurgitation [Recovered/Resolved]
  - Product difficult to swallow [None]
  - Foreign body [Recovered/Resolved]

NARRATIVE: CASE EVENT DATE: 2015
